FAERS Safety Report 5026198-2 (Version None)
Quarter: 2006Q2

REPORT INFORMATION
  Report Type: 
  Country: None (occurrence: None)
  Receive Date: 20060608
  Receipt Date: 20020516
  Transmission Date: 20061013
  Serious: No
  Sender: FDA-Public Use
  Company Number: 2002-04-1544

PATIENT
  Sex: Male
  Weight: 91 kg

DRUGS (7)
  1. ETHYOL [Suspect]
     Indication: ADVERSE DRUG REACTION
     Dosage: SEE IMAGE
     Route: 058
     Dates: start: 20020319, end: 20020101
  2. ETHYOL [Suspect]
     Indication: ADVERSE DRUG REACTION
     Dosage: SEE IMAGE
     Route: 058
     Dates: start: 20020319, end: 20020401
  3. ETHYOL [Suspect]
     Indication: ADVERSE DRUG REACTION
     Dosage: SEE IMAGE
     Route: 058
     Dates: start: 20020401, end: 20020401
  4. ETHYOL [Suspect]
     Indication: ADVERSE DRUG REACTION
     Dosage: SEE IMAGE
     Route: 058
     Dates: start: 20020404, end: 20020404
  5. RADIATION THERAPY [Suspect]
     Indication: NEOPLASM MALIGNANT
     Dosage: OTHER
     Dates: start: 20020318, end: 20020501
  6. TORECAN [Concomitant]
  7. CETIRIZINE DIHYDROCHLORIDE [Concomitant]

REACTIONS (5)
  - GENERALISED ERYTHEMA [None]
  - INJECTION SITE ERYTHEMA [None]
  - MALAISE [None]
  - PYREXIA [None]
  - SKIN TOXICITY [None]
